FAERS Safety Report 24628802 (Version 1)
Quarter: 2024Q4

REPORT INFORMATION
  Report Type: Report from Study
  Country: AT (occurrence: AT)
  Receive Date: 20241117
  Receipt Date: 20241117
  Transmission Date: 20250115
  Serious: Yes (Hospitalization)
  Sender: ABBVIE
  Company Number: AT-ABBVIE-5943241

PATIENT
  Age: 63 Year
  Sex: Female

DRUGS (1)
  1. FOSCARBIDOPA\FOSLEVODOPA [Suspect]
     Active Substance: FOSCARBIDOPA\FOSLEVODOPA
     Indication: Parkinson^s disease
     Dosage: CR 0.32ML/H; CRHIGH 0.37ML/H; CRLOW 0.20ML/H; ED 0.30ML, BLOCKING TIME 2H
     Route: 058
     Dates: start: 20240528, end: 20241104

REACTIONS (5)
  - Mental disorder [Recovering/Resolving]
  - Device issue [Unknown]
  - Fear [Unknown]
  - Hallucination [Unknown]
  - Delusion [Unknown]

NARRATIVE: CASE EVENT DATE: 20240101
